FAERS Safety Report 19155933 (Version 2)
Quarter: 2021Q2

REPORT INFORMATION
  Report Type: Spontaneous
  Country: US (occurrence: US)
  Receive Date: 20210420
  Receipt Date: 20210628
  Transmission Date: 20210717
  Serious: Yes (Other)
  Sender: FDA-Public Use
  Company Number: US-JNJFOC-20210426345

PATIENT
  Age: 84 Year
  Sex: Female

DRUGS (15)
  1. ELMIRON [Suspect]
     Active Substance: PENTOSAN POLYSULFATE SODIUM
     Indication: CYSTITIS INTERSTITIAL
     Route: 048
     Dates: start: 20150331, end: 20180411
  2. SYNTHROID [Concomitant]
     Active Substance: LEVOTHYROXINE SODIUM
     Indication: HYPOTHYROIDISM
     Dates: start: 19980101
  3. FUROSEMIDE. [Concomitant]
     Active Substance: FUROSEMIDE
     Indication: LYMPHOEDEMA
     Dates: start: 20190101
  4. SINEMET [Concomitant]
     Active Substance: CARBIDOPA\LEVODOPA
     Indication: RESTLESS LEGS SYNDROME
     Dates: start: 20151012
  5. CLOBETASOL [Concomitant]
     Active Substance: CLOBETASOL
     Indication: LICHEN SCLEROSUS
     Dates: start: 20180101
  6. ELMIRON [Suspect]
     Active Substance: PENTOSAN POLYSULFATE SODIUM
     Route: 048
     Dates: start: 20180412, end: 20190311
  7. GABAPENTIN. [Concomitant]
     Active Substance: GABAPENTIN
     Indication: PAIN
     Dates: start: 20180301
  8. NITROFURANTOIN. [Concomitant]
     Active Substance: NITROFURANTOIN
     Indication: URINARY TRACT INFECTION
     Dates: start: 20160314, end: 20160319
  9. CEPHALEXINE [Concomitant]
     Active Substance: CEPHALEXIN
     Indication: POSTOPERATIVE CARE
     Dates: start: 20150413, end: 20150416
  10. TRAMADOL. [Concomitant]
     Active Substance: TRAMADOL
     Indication: PAIN
     Dates: start: 20150319
  11. OMEPRAZOLE. [Concomitant]
     Active Substance: OMEPRAZOLE
     Indication: DYSPEPSIA
     Dates: start: 20150707
  12. ELMIRON [Suspect]
     Active Substance: PENTOSAN POLYSULFATE SODIUM
     Route: 048
     Dates: start: 2019, end: 201912
  13. MIRAPEX [Concomitant]
     Active Substance: PRAMIPEXOLE DIHYDROCHLORIDE
     Indication: RESTLESS LEGS SYNDROME
     Dates: start: 20190101
  14. BACLOFEN. [Concomitant]
     Active Substance: BACLOFEN
     Indication: MUSCLE SPASMS
     Dates: start: 20180301
  15. TOLTERODINE [Concomitant]
     Active Substance: TOLTERODINE
     Indication: HYPERTONIC BLADDER
     Dates: start: 20150209

REACTIONS (1)
  - Neovascular age-related macular degeneration [Not Recovered/Not Resolved]

NARRATIVE: CASE EVENT DATE: 20180327
